FAERS Safety Report 6301164-5 (Version None)
Quarter: 2009Q3

REPORT INFORMATION
  Report Type: 
  Country: None (occurrence: None)
  Receive Date: 20090807
  Receipt Date: 20090730
  Transmission Date: 20100115
  Serious: Yes (Hospitalization)
  Sender: FDA-Public Use
  Company Number: FR-PFIZER INC-2009247817

PATIENT
  Age: 77 Year

DRUGS (5)
  1. SUTENT [Suspect]
     Dosage: 37.5 MG, 1X/DAY
     Route: 048
     Dates: start: 20081029
  2. SUTENT [Suspect]
     Dosage: 25 MG, 1X/DAY
     Dates: start: 20090318, end: 20090520
  3. XALATAN [Concomitant]
     Dosage: 2 DF, 1X/DAY
     Route: 047
     Dates: start: 20090101
  4. SANDOSTATIN [Concomitant]
     Indication: GLUCAGONOMA
     Dosage: UNK
     Dates: start: 20090301, end: 20090501
  5. AMLOR [Concomitant]
     Indication: HYPERTENSION
     Dosage: 5 MG, DAILY

REACTIONS (2)
  - CEREBRAL ARTERITIS [None]
  - ENCEPHALOPATHY [None]
